FAERS Safety Report 21475806 (Version 1)
Quarter: 2022Q4

REPORT INFORMATION
  Report Type: Spontaneous
  Country: US (occurrence: US)
  Receive Date: 20221019
  Receipt Date: 20221019
  Transmission Date: 20230113
  Serious: No
  Sender: FDA-Public Use
  Company Number: None

PATIENT
  Age: 69 Year
  Sex: Female

DRUGS (1)
  1. AMLODIPINE BESYLATE [Suspect]
     Active Substance: AMLODIPINE BESYLATE
     Indication: Hypertension
     Route: 048
     Dates: start: 2022, end: 2022

REACTIONS (6)
  - Nausea [Recovering/Resolving]
  - Dysgeusia [Recovering/Resolving]
  - Product taste abnormal [Recovering/Resolving]
  - Drug ineffective [Unknown]
  - Product solubility abnormal [Unknown]
  - Product substitution issue [Unknown]

NARRATIVE: CASE EVENT DATE: 20220101
